FAERS Safety Report 14571603 (Version 2)
Quarter: 2022Q3

REPORT INFORMATION
  Report Type: Spontaneous
  Country: US (occurrence: US)
  Receive Date: 20180226
  Receipt Date: 20220919
  Transmission Date: 20221027
  Serious: Yes (Other)
  Sender: FDA-Public Use
  Company Number: US-PFIZER INC-2018076620

PATIENT
  Age: 45 Year
  Sex: Female
  Weight: 104.33 kg

DRUGS (3)
  1. XELJANZ [Suspect]
     Active Substance: TOFACITINIB CITRATE
     Indication: Rheumatoid arthritis
     Dosage: 5 MG, UNK
     Route: 048
     Dates: start: 2015
  2. XELJANZ [Suspect]
     Active Substance: TOFACITINIB CITRATE
     Dosage: 5 MG, EVERY 2-3 DAYS
     Route: 048
     Dates: start: 201712, end: 20180217
  3. XELJANZ [Suspect]
     Active Substance: TOFACITINIB CITRATE
     Dosage: 5 MG, 2X/DAY
     Route: 048

REACTIONS (6)
  - Hysterectomy [Unknown]
  - Intentional product misuse [Unknown]
  - Arthralgia [Unknown]
  - Pain [Unknown]
  - Musculoskeletal stiffness [Unknown]
  - Joint stiffness [Unknown]

NARRATIVE: CASE EVENT DATE: 20171201
